FAERS Safety Report 4559128-8 (Version None)
Quarter: 2005Q1

REPORT INFORMATION
  Report Type: 
  Country: None (occurrence: None)
  Receive Date: 20050124
  Receipt Date: 20050114
  Transmission Date: 20050727
  Serious: Yes (Hospitalization)
  Sender: FDA-Public Use
  Company Number: SEWYE345417JAN05

PATIENT
  Sex: Female

DRUGS (3)
  1. ENBREL [Suspect]
     Indication: PSORIATIC ARTHROPATHY
     Route: 058
     Dates: start: 20040527, end: 20041216
  2. METHOTREXATE [Concomitant]
     Dosage: NOT SPECIFIED
     Dates: start: 20020801
  3. FOLINIC ACID [Concomitant]

REACTIONS (1)
  - FACIAL PARESIS [None]
